FAERS Safety Report 7533226-9 (Version None)
Quarter: 2011Q2

REPORT INFORMATION
  Report Type: 
  Country: None (occurrence: None)
  Receive Date: 20110608
  Receipt Date: 20100116
  Transmission Date: 20111010
  Serious: Yes (Death, Hospitalization, Other)
  Sender: FDA-Public Use
  Company Number: US-BAYER-201011392NA

PATIENT
  Age: 36 Year
  Sex: Female
  Weight: 54 kg

DRUGS (15)
  1. TRASYLOL [Suspect]
     Indication: CORONARY ARTERY BYPASS
     Dosage: UNK
     Route: 042
     Dates: start: 19990225
  2. XANAX [Concomitant]
     Dosage: 0.25 MG, UNK
     Route: 048
     Dates: start: 19960802
  3. SERZONE [Concomitant]
     Dosage: 100 MG, UNK
     Route: 048
     Dates: start: 19970128
  4. GLYCOPYRROLATE [Concomitant]
     Dosage: 0.4 MG, UNK
     Route: 042
     Dates: start: 19990225, end: 19990225
  5. PROTAMINE SULFATE [Concomitant]
     Dosage: 50 MG, UNK
     Route: 042
     Dates: start: 19990225, end: 19990225
  6. CEFAZOLIN [Concomitant]
     Dosage: 1000 MG, UNK
     Route: 042
     Dates: start: 19990225, end: 19990225
  7. PANCURONIUM [Concomitant]
     Dosage: 7 MG, UNK
     Route: 042
     Dates: start: 19990225, end: 19990225
  8. MIDAZOLAM [Concomitant]
     Dosage: 1 MG, UNK
     Route: 042
     Dates: start: 19990225, end: 19990225
  9. ALBUTEROL SULFATE AUTOHALER [Concomitant]
     Dosage: 10 DOSE, UNK
     Route: 055
     Dates: start: 19990225
  10. FENTANYL [Concomitant]
     Dosage: 1000 MG, UNK
     Route: 042
     Dates: start: 19990225
  11. LO/OVRAL [Concomitant]
     Dosage: UNK
     Route: 048
     Dates: start: 19970108
  12. THIOPENTAL SODIUM [Concomitant]
     Dosage: 400 MG, UNK
     Route: 042
     Dates: start: 19990225, end: 19990225
  13. SUCCINYLCHOLINE CHLORIDE [Concomitant]
     Dosage: 120 MG, UNK
     Route: 042
     Dates: start: 19990225, end: 19990225
  14. HEPARIN [Concomitant]
     Dosage: 5 K UNITS, UNK
     Route: 042
     Dates: start: 19990225, end: 19990225
  15. PROSTIGMIN BROMIDE [Concomitant]
     Dosage: 1.5 MG, UNK
     Route: 042
     Dates: start: 19990225, end: 19990225

REACTIONS (15)
  - CARDIAC DISORDER [None]
  - ANXIETY [None]
  - RENAL INJURY [None]
  - RENAL IMPAIRMENT [None]
  - RENAL FAILURE [None]
  - FEAR [None]
  - PAIN [None]
  - DEPRESSION [None]
  - DEATH [None]
  - CEREBROVASCULAR ACCIDENT [None]
  - ANHEDONIA [None]
  - INJURY [None]
  - ORGAN FAILURE [None]
  - UNEVALUABLE EVENT [None]
  - MYOCARDIAL INFARCTION [None]
